FAERS Safety Report 4302639-0 (Version None)
Quarter: 2004Q1

REPORT INFORMATION
  Report Type: 
  Country: None (occurrence: None)
  Receive Date: 20040126
  Receipt Date: 20031010
  Transmission Date: 20041129
  Serious: No
  Sender: FDA-Public Use
  Company Number: USA031049626

PATIENT
  Age: 9 Year
  Sex: Male

DRUGS (1)
  1. STRATTERA [Suspect]
     Indication: ATTENTION DEFICIT/HYPERACTIVITY DISORDER
     Dosage: 60 MG/IN  THE EVENING
     Dates: start: 20030920

REACTIONS (5)
  - COUGH [None]
  - INCREASED APPETITE [None]
  - MOOD SWINGS [None]
  - NASOPHARYNGITIS [None]
  - VOMITING [None]
